FAERS Safety Report 19390478 (Version 1)
Quarter: 2021Q2

REPORT INFORMATION
  Report Type: Spontaneous
  Country: CZ (occurrence: CZ)
  Receive Date: 20210608
  Receipt Date: 20210608
  Transmission Date: 20210717
  Serious: Yes (Hospitalization, Other)
  Sender: FDA-Public Use
  Company Number: CZ-MYLANLABS-2021M1029448

PATIENT
  Sex: Female

DRUGS (1)
  1. KLACID [Suspect]
     Active Substance: CLARITHROMYCIN
     Indication: RESPIRATORY TRACT INFECTION
     Dosage: 500 MILLIGRAM, BID
     Route: 048
     Dates: start: 201901

REACTIONS (13)
  - Seizure [Unknown]
  - Thrombocytopenia [Unknown]
  - Loss of consciousness [Unknown]
  - Rib fracture [Unknown]
  - Fall [Unknown]
  - Syncope [Unknown]
  - Respiratory arrest [Unknown]
  - Vomiting [Unknown]
  - Dyspnoea [Unknown]
  - Skin disorder [Unknown]
  - Head injury [Unknown]
  - Leukopenia [Unknown]
  - Malaise [Unknown]

NARRATIVE: CASE EVENT DATE: 201901
